FAERS Safety Report 16892474 (Version 2)
Quarter: 2019Q4

REPORT INFORMATION
  Report Type: Spontaneous
  Country: MX (occurrence: MX)
  Receive Date: 20191007
  Receipt Date: 20191010
  Transmission Date: 20200122
  Serious: Yes (Death, Other)
  Sender: FDA-Public Use
  Company Number: MX-TAKEDA-2019TUS055477

PATIENT
  Age: 38 Year
  Sex: Male

DRUGS (1)
  1. PONATINIB [Suspect]
     Active Substance: PONATINIB
     Indication: CHRONIC MYELOID LEUKAEMIA
     Dosage: 45 MILLIGRAM, QD
     Route: 048

REACTIONS (3)
  - Pancytopenia [Fatal]
  - Chronic myeloid leukaemia recurrent [Unknown]
  - Septic shock [Fatal]

NARRATIVE: CASE EVENT DATE: 20190923
